FAERS Safety Report 9452550 (Version 1)
Quarter: 2013Q3

REPORT INFORMATION
  Report Type: Spontaneous
  Country: GB (occurrence: GB)
  Receive Date: 20130812
  Receipt Date: 20130812
  Transmission Date: 20140515
  Serious: Yes (Other)
  Sender: FDA-Public Use
  Company Number: GB-ACCORD-018808

PATIENT
  Sex: Male
  Weight: 110 kg

DRUGS (5)
  1. MONTELUKAST [Suspect]
     Indication: ASTHMA
     Route: 048
     Dates: start: 20130529, end: 20130602
  2. LORATADINE [Concomitant]
     Indication: SEASONAL ALLERGY
     Dosage: ONGOING THERAPY.
     Route: 048
  3. MOMETASONE FUROATE [Concomitant]
     Indication: SEASONAL ALLERGY
     Dosage: ONGOING  THERAPY.
     Route: 045
  4. CLENIL MODULITE [Concomitant]
     Indication: ASTHMA
     Dosage: 2 PUFFS. ONGOING THERAPY.
     Route: 055
     Dates: start: 20070621
  5. SALBUTAMOL [Concomitant]
     Indication: ASTHMA
     Dosage: 2 PUFFS AS REQUIRED. ONGONIG THERAPY.
     Route: 055
     Dates: start: 19990521

REACTIONS (4)
  - Rectal haemorrhage [Recovering/Resolving]
  - Abdominal pain [Recovering/Resolving]
  - Headache [Recovering/Resolving]
  - Liver function test abnormal [Recovering/Resolving]
